FAERS Safety Report 4388926-9 (Version None)
Quarter: 2004Q2

REPORT INFORMATION
  Report Type: 
  Country: None (occurrence: None)
  Receive Date: 20040628
  Receipt Date: 20040611
  Transmission Date: 20050107
  Serious: Yes (Other)
  Sender: FDA-Public Use
  Company Number: 199937

PATIENT
  Age: 57 Year
  Sex: Female
  Weight: 60.3284 kg

DRUGS (2)
  1. AVONEX [Suspect]
     Indication: MULTIPLE SCLEROSIS
     Dosage: 30 MCG QW IM
     Route: 030
     Dates: start: 19990101, end: 20040201
  2. AVONEX [Suspect]
     Indication: MULTIPLE SCLEROSIS
     Dosage: 30 MCG QW IM
     Route: 030
     Dates: start: 20040201

REACTIONS (6)
  - ASEPTIC NECROSIS BONE [None]
  - JOINT STIFFNESS [None]
  - JOINT SWELLING [None]
  - MENISCUS LESION [None]
  - MUSCLE CRAMP [None]
  - OSTEOARTHRITIS [None]
